FAERS Safety Report 13464096 (Version 1)
Quarter: 2017Q2

REPORT INFORMATION
  Report Type: Spontaneous
  Country: US (occurrence: US)
  Receive Date: 20170420
  Receipt Date: 20170420
  Transmission Date: 20170830
  Serious: Yes (Other)
  Sender: FDA-Public Use
  Company Number: US-ROCHE-718965

PATIENT
  Age: 42 Year
  Sex: Female
  Weight: 44.5 kg

DRUGS (8)
  1. ACCUTANE [Suspect]
     Active Substance: ISOTRETINOIN
     Route: 065
     Dates: start: 2000, end: 2001
  2. ALLEGRA [Concomitant]
     Active Substance: FEXOFENADINE HYDROCHLORIDE
  3. ADVAIR DISKUS [Concomitant]
     Active Substance: FLUTICASONE PROPIONATE\SALMETEROL XINAFOATE
  4. IMURAN [Concomitant]
     Active Substance: AZATHIOPRINE
  5. THEOPHYLLINE [Concomitant]
     Active Substance: THEOPHYLLINE ANHYDROUS
  6. COLAZAL [Concomitant]
     Active Substance: BALSALAZIDE DISODIUM
     Indication: COLITIS ULCERATIVE
  7. ACCUTANE [Suspect]
     Active Substance: ISOTRETINOIN
     Indication: ACNE
     Route: 065
     Dates: start: 1998, end: 2000
  8. RHINOCORT AQUA [Concomitant]
     Active Substance: BUDESONIDE

REACTIONS (14)
  - Inflammatory bowel disease [Unknown]
  - Conjunctivitis [Unknown]
  - Headache [Unknown]
  - Viral infection [Unknown]
  - Inflammatory bowel disease [Unknown]
  - Tonsillitis [Unknown]
  - Gastrointestinal injury [Unknown]
  - Sinusitis [Unknown]
  - Eustachian tube dysfunction [Unknown]
  - Tonsillar disorder [Unknown]
  - Neck pain [Unknown]
  - Colitis ulcerative [Not Recovered/Not Resolved]
  - Anaemia [Unknown]
  - Back pain [Unknown]

NARRATIVE: CASE EVENT DATE: 1998
